FAERS Safety Report 10674054 (Version 1)
Quarter: 2014Q4

REPORT INFORMATION
  Report Type: Report from Study
  Country: BR (occurrence: BR)
  Receive Date: 20141224
  Receipt Date: 20141224
  Transmission Date: 20150529
  Serious: Yes (Death, Other)
  Sender: FDA-Public Use
  Company Number: PHHY2014BR168135

PATIENT
  Sex: Female
  Weight: 62 kg

DRUGS (9)
  1. ARADOIS [Concomitant]
     Active Substance: LOSARTAN POTASSIUM
     Indication: THYROID DISORDER
     Dosage: 2 DF, QD
     Route: 065
  2. EXELON [Suspect]
     Active Substance: RIVASTIGMINE TARTRATE
     Indication: DEMENTIA ALZHEIMER^S TYPE
     Dosage: 1 DF, BID (IN THE MORNING AND AT NIGHT)
     Route: 065
  3. DAFLON                             /01026201/ [Concomitant]
     Active Substance: DIOSMIN\HESPERIDIN
     Indication: CARDIOVASCULAR DISORDER
     Dosage: 1 DF, QD
     Route: 065
  4. RISPERIDONE. [Concomitant]
     Active Substance: RISPERIDONE
     Indication: AGITATION
  5. RISPERIDONE. [Concomitant]
     Active Substance: RISPERIDONE
     Indication: NERVOUS SYSTEM DISORDER
     Dosage: 0.5 DF, BID (IN THE MORNING AND AT NIGHT)
     Route: 065
  6. ROHYPNOL [Concomitant]
     Active Substance: FLUNITRAZEPAM
     Indication: SLEEP DISORDER
     Dosage: 2 DF, QHS
     Route: 065
  7. BETASERC [Concomitant]
     Active Substance: BETAHISTINE
     Indication: LABYRINTHITIS
     Dosage: 2 DF, QD
     Route: 065
  8. OLCADIL [Concomitant]
     Active Substance: CLOXAZOLAM
     Indication: PRODUCT USED FOR UNKNOWN INDICATION
     Dosage: UNK UKN, UNK
     Route: 065
  9. CHLORTALIDONE [Concomitant]
     Active Substance: CHLORTHALIDONE
     Indication: HYPERTENSION
     Dosage: 1 DF, QD
     Route: 065

REACTIONS (1)
  - Myocardial infarction [Fatal]

NARRATIVE: CASE EVENT DATE: 20141206
